FAERS Safety Report 16304256 (Version 2)
Quarter: 2020Q4

REPORT INFORMATION
  Report Type: Spontaneous
  Country: DE (occurrence: DE)
  Receive Date: 20190513
  Receipt Date: 20201021
  Transmission Date: 20210113
  Serious: Yes (Hospitalization, Other)
  Sender: FDA-Public Use
  Company Number: DE-MYLANLABS-2019M1045795

PATIENT
  Age: 66 Year
  Sex: Male

DRUGS (26)
  1. VALSARTAN. [Suspect]
     Active Substance: VALSARTAN
     Dosage: 240 MILLIGRAM, QD
     Route: 048
     Dates: start: 201712, end: 20180530
  2. TRAUMEEL S [Concomitant]
     Active Substance: HOMEOPATHICS
     Dosage: UNK
     Dates: start: 20180508
  3. AMLODIPIN                          /00972401/ [Concomitant]
     Active Substance: AMLODIPINE BESYLATE
     Dosage: UNK
     Dates: start: 20180227
  4. ACICLOSTAD [Concomitant]
     Active Substance: ACYCLOVIR
     Dosage: UNK
     Dates: start: 20180426
  5. ACETYLSALICYLIC ACID [Concomitant]
     Active Substance: ASPIRIN
     Dosage: UNK
     Dates: start: 20170524
  6. PANTOPRAZOL                        /01263201/ [Concomitant]
     Active Substance: PANTOPRAZOLE
     Dosage: INTAKE CYCLICAL
     Route: 048
     Dates: start: 20150903
  7. COTRIMOXAZOL AL [Concomitant]
     Active Substance: SULFAMETHOXAZOLE\TRIMETHOPRIM
     Dosage: UNK
     Dates: start: 20170812
  8. PVP JOD [Concomitant]
     Dosage: UNK
     Dates: start: 20180508
  9. VALSACOR [Suspect]
     Active Substance: VALSARTAN
     Indication: HYPERTENSION
     Dosage: UNK
     Route: 048
     Dates: start: 20180710
  10. NITROLINGUAL [Concomitant]
     Active Substance: NITROGLYCERIN
     Dosage: UNK
     Dates: start: 20180322
  11. RAMILICH COMP [Concomitant]
     Active Substance: HYDROCHLOROTHIAZIDE\RAMIPRIL
     Dosage: UNK
     Dates: start: 20150105
  12. TILIDIN AL COMP [Concomitant]
     Active Substance: NALOXONE HYDROCHLORIDE\TILIDINE HYDROCHLORIDE
     Dosage: UNK
     Dates: start: 20180530
  13. VALSARTAN. [Suspect]
     Active Substance: VALSARTAN
     Indication: HYPERTENSION
     Dosage: UNK
     Route: 048
     Dates: start: 20150805, end: 20180530
  14. TORASEMID HEXAL [Concomitant]
     Active Substance: TORSEMIDE
     Dosage: UNK
     Dates: start: 20180202
  15. VALSARTAN. [Suspect]
     Active Substance: VALSARTAN
     Dosage: UNK
     Route: 048
     Dates: start: 20180810, end: 20180907
  16. AMOXICLAV [Concomitant]
     Active Substance: AMOXICILLIN\CLAVULANATE POTASSIUM
     Dosage: UNK
     Dates: start: 20180130
  17. ANAESTHESULF                       /00609401/ [Concomitant]
     Dosage: UNK
     Dates: start: 20180426
  18. BERLOSIN [Concomitant]
     Active Substance: METAMIZOLE
     Dosage: UNK
     Dates: start: 20180426
  19. VALSARTAN. [Suspect]
     Active Substance: VALSARTAN
     Dosage: 80 MILLIGRAM, QD
     Route: 048
     Dates: start: 20150805
  20. VALSARTAN. [Suspect]
     Active Substance: VALSARTAN
     Dosage: 160 MILLIGRAM, QD
     Route: 048
  21. BISOPROLOL 1A PHARMA [Concomitant]
     Active Substance: BISOPROLOL
     Dosage: INTAKE CYCLICAL
     Route: 048
     Dates: start: 20150105
  22. ELIQUIS [Concomitant]
     Active Substance: APIXABAN
     Dosage: UNK
     Dates: start: 20180116
  23. PANTOPRAZOL ACCORD [Concomitant]
     Dosage: UNK, CYCLE
     Route: 048
  24. MULTAQ [Concomitant]
     Active Substance: DRONEDARONE
     Dosage: UNK
     Dates: start: 20180116
  25. CILOXAN [Concomitant]
     Active Substance: CIPROFLOXACIN HYDROCHLORIDE
     Dosage: UNK
     Dates: start: 20160713, end: 2016
  26. OPIPRAM [Concomitant]
     Active Substance: OPIPRAMOL HYDROCHLORIDE
     Dosage: UNK
     Dates: start: 20170524

REACTIONS (25)
  - Pinguecula [Unknown]
  - Swelling [Unknown]
  - Lacrimation decreased [Unknown]
  - Retinopathy hypertensive [Unknown]
  - Squamous cell carcinoma [Unknown]
  - Varicose vein [Unknown]
  - Product impurity [Unknown]
  - Mental disorder [Unknown]
  - Blepharochalasis [Unknown]
  - Post herpetic neuralgia [Unknown]
  - Atrial fibrillation [Recovered/Resolved]
  - Erythema [Unknown]
  - B-cell lymphoma [Unknown]
  - Presbyopia [Unknown]
  - Pain [Unknown]
  - Peripheral venous disease [Unknown]
  - Immunodeficiency common variable [Unknown]
  - General physical health deterioration [Unknown]
  - Cataract [Unknown]
  - Herpes zoster [Unknown]
  - Splenic marginal zone lymphoma stage IV [Unknown]
  - Pyrexia [Recovered/Resolved]
  - Arrhythmia [Recovered/Resolved]
  - Gait disturbance [Unknown]
  - Cellulitis [Unknown]

NARRATIVE: CASE EVENT DATE: 201706
